FAERS Safety Report 8761343 (Version 3)
Quarter: 2013Q2

REPORT INFORMATION
  Report Type: Spontaneous
  Country: US (occurrence: US)
  Receive Date: 20120830
  Receipt Date: 20130411
  Transmission Date: 20140414
  Serious: Yes (Other)
  Sender: FDA-Public Use
  Company Number: US-ASTRAZENECA-2012SE61313

PATIENT
  Age: 62 Year
  Sex: Female
  Weight: 88 kg

DRUGS (4)
  1. NEXIUM [Suspect]
     Route: 048
  2. NEXIUM [Suspect]
     Route: 048
  3. ADVIL [Concomitant]
  4. ZANTAC [Concomitant]

REACTIONS (7)
  - Thyroid disorder [Unknown]
  - Off label use [Unknown]
  - Breast cancer [Unknown]
  - Anaemia [Unknown]
  - Dyspepsia [Not Recovered/Not Resolved]
  - Gastric mucosal lesion [Unknown]
  - Bone disorder [Unknown]
